FAERS Safety Report 24092684 (Version 1)
Quarter: 2024Q3

REPORT INFORMATION
  Report Type: Spontaneous
  Country: GB (occurrence: GB)
  Receive Date: 20240715
  Receipt Date: 20240715
  Transmission Date: 20241016
  Serious: Yes (Other)
  Sender: TEVA
  Company Number: None

PATIENT
  Age: 41 Year
  Sex: Female
  Weight: 103 kg

DRUGS (1)
  1. DOXYCYCLINE [Suspect]
     Active Substance: DOXYCYCLINE\DOXYCYCLINE HYCLATE
     Indication: Upper respiratory tract infection
     Dosage: 100MG. TAKE 2 FOR FIRST DOSE THEN 1 A DAY,
     Dates: start: 20240513, end: 20240513

REACTIONS (1)
  - Yellow skin [Recovered/Resolved]

NARRATIVE: CASE EVENT DATE: 20240513
